FAERS Safety Report 8488284-4 (Version None)
Quarter: 2012Q3

REPORT INFORMATION
  Report Type: 
  Country: None (occurrence: None)
  Receive Date: 20120705
  Receipt Date: 20120628
  Transmission Date: 20120928
  Serious: Yes (Hospitalization)
  Sender: FDA-Public Use
  Company Number: DE-PFIZER INC-2012155391

PATIENT
  Age: 10 Year
  Sex: Male
  Weight: 50 kg

DRUGS (1)
  1. GENOTROPIN [Suspect]
     Indication: HYPOPITUITARISM
     Dosage: 0.9 MG, 1X/DAY
     Dates: start: 20040322

REACTIONS (3)
  - PAPILLOEDEMA [None]
  - SCOTOMA [None]
  - HEADACHE [None]
